FAERS Safety Report 4781152-0 (Version None)
Quarter: 2005Q3

REPORT INFORMATION
  Report Type: 
  Country: None (occurrence: None)
  Receive Date: 20050927
  Receipt Date: 20050927
  Transmission Date: 20060218
  Serious: Yes (Death, Hospitalization)
  Sender: FDA-Public Use
  Company Number: None

PATIENT
  Sex: Male
  Weight: 59 kg

DRUGS (2)
  1. CISPLATIN [Suspect]
     Indication: NEOPLASM
     Dosage: SEE IMAGE
     Dates: start: 20050606, end: 20050627
  2. CISPLATIN [Suspect]
     Indication: NEOPLASM
     Dosage: SEE IMAGE
     Dates: start: 20050627

REACTIONS (8)
  - DEEP VEIN THROMBOSIS [None]
  - HAEMOPTYSIS [None]
  - HYPOTENSION [None]
  - MENTAL STATUS CHANGES [None]
  - PNEUMONIA ASPIRATION [None]
  - RENAL FAILURE ACUTE [None]
  - RESPIRATORY DISTRESS [None]
  - RESPIRATORY FAILURE [None]
